FAERS Safety Report 5902733-4 (Version None)
Quarter: 2008Q3

REPORT INFORMATION
  Report Type: 
  Country: None (occurrence: None)
  Receive Date: 20080930
  Receipt Date: 20080918
  Transmission Date: 20090109
  Serious: Yes (Hospitalization)
  Sender: FDA-Public Use
  Company Number: FR-WYE-H06056808

PATIENT
  Sex: Female

DRUGS (7)
  1. INIPOMP [Suspect]
     Route: 048
     Dates: end: 20080715
  2. CYMBALTA [Suspect]
     Indication: DEPRESSION
     Route: 048
     Dates: start: 20080704, end: 20080715
  3. TARDYFERON [Concomitant]
     Dosage: UNSPECIFIED
     Route: 065
  4. ZOPICLONE [Concomitant]
     Route: 048
  5. TANAKAN [Concomitant]
     Dosage: UNSPECIFIED
     Route: 065
  6. DITROPAN [Suspect]
     Indication: DYSURIA
     Route: 048
     Dates: end: 20080715
  7. COAPROVEL [Concomitant]
     Dosage: 300/25
     Route: 048

REACTIONS (3)
  - AGGRESSION [None]
  - DELUSION [None]
  - NEGATIVISM [None]
